FAERS Safety Report 8083856-3 (Version None)
Quarter: 2012Q1

REPORT INFORMATION
  Report Type: 
  Country: None (occurrence: None)
  Receive Date: 20120128
  Receipt Date: 20110204
  Transmission Date: 20120608
  Serious: No
  Sender: FDA-Public Use
  Company Number: US-ABBOTT-11P-163-0702977-00

PATIENT
  Sex: Female
  Weight: 61.29 kg

DRUGS (7)
  1. LISINOPRIL [Concomitant]
     Indication: HYPERTENSION
  2. OXYCODONE HCL [Suspect]
     Indication: ARTHRALGIA
     Route: 048
  3. PLAVIX [Concomitant]
     Indication: CEREBROVASCULAR ACCIDENT
  4. HUMIRA [Suspect]
     Indication: RHEUMATOID ARTHRITIS
     Route: 058
     Dates: start: 20110203
  5. OXYCONTIN [Suspect]
     Indication: ARTHRALGIA
     Route: 048
  6. PREDNISONE TAB [Concomitant]
     Indication: RHEUMATOID ARTHRITIS
  7. NEXIUM [Concomitant]
     Indication: GASTRIC DISORDER

REACTIONS (2)
  - NAUSEA [None]
  - POOR QUALITY SLEEP [None]
